FAERS Safety Report 20456114 (Version 1)
Quarter: 2022Q1

REPORT INFORMATION
  Report Type: Spontaneous
  Country: US (occurrence: US)
  Receive Date: 20220210
  Receipt Date: 20220210
  Transmission Date: 20220423
  Serious: Yes (Death)
  Sender: FDA-Public Use
  Company Number: US-PERRIGO-22US001864

PATIENT
  Age: 18 Year
  Sex: Female

DRUGS (3)
  1. ACETAMINOPHEN [Suspect]
     Active Substance: ACETAMINOPHEN
     Indication: Suspected suicide
     Dosage: UNKNOWN, UNKNOWN
     Route: 050
  2. TRAMADOL [Suspect]
     Active Substance: TRAMADOL
     Indication: Suspected suicide
     Dosage: UNKNOWN, UNKNOWN
     Route: 050
  3. COCAINE [Suspect]
     Active Substance: COCAINE
     Indication: Suspected suicide
     Dosage: UNKNOWN, UNKNOWN
     Route: 050

REACTIONS (1)
  - Exposure to toxic agent [Fatal]

NARRATIVE: CASE EVENT DATE: 20200101
